FAERS Safety Report 9257200 (Version 1)
Quarter: 2013Q1

REPORT INFORMATION
  Report Type: Spontaneous
  Country: US (occurrence: US)
  Receive Date: 20121212
  Receipt Date: 20121212
  Transmission Date: 20140127
  Serious: No
  Sender: FDA-Public Use
  Company Number: 1208USA007887

PATIENT
  Age: 53 Year
  Sex: Male
  Weight: 128.8 kg

DRUGS (10)
  1. VICTRELIS [Suspect]
     Route: 048
  2. REBETOL [Suspect]
  3. PEGASYS (PEGINTERFERON ALFA-2A) INJECTION [Concomitant]
  4. EFFIENT (PRASUGEL HYDROCHLORIDE) TABLET [Concomitant]
  5. CITALOPRAM (CITALOPRAM) CAPSULE [Concomitant]
  6. OMEPRAZOLE (OMEPRAZOLE) [Concomitant]
  7. LOVAZA (OMEGA-3 ACID ETHYL ESTERS) CAPSULE, 1 G [Concomitant]
  8. PRILOSEC (OMEPRAZOLE) CAPSULE [Concomitant]
  9. COLACE (DOCUSATE SODIUM) CAPSULE [Concomitant]
  10. MULTIVIT (VITAMINS (UNSPECIFIED)) TABLET [Concomitant]

REACTIONS (4)
  - Malaise [None]
  - Headache [None]
  - Dizziness [None]
  - Fatigue [None]
